FAERS Safety Report 16344187 (Version 1)
Quarter: 2019Q2

REPORT INFORMATION
  Report Type: Spontaneous
  Country: CN (occurrence: CN)
  Receive Date: 20190522
  Receipt Date: 20190522
  Transmission Date: 20190711
  Serious: Yes (Other)
  Sender: FDA-Public Use
  Company Number: CN-ROCHE-2318643

PATIENT
  Age: 49 Year
  Sex: Female
  Weight: 71 kg

DRUGS (16)
  1. OXALIPLATIN. [Concomitant]
     Active Substance: OXALIPLATIN
     Indication: ADENOCARCINOMA OF COLON
     Dosage: DAY1
     Route: 065
     Dates: start: 201506, end: 201510
  2. IRINOTECAN [Concomitant]
     Active Substance: IRINOTECAN
     Dosage: DAY1, DAY8
     Route: 041
     Dates: start: 201706, end: 201707
  3. 5-FLUOROURACIL [FLUOROURACIL] [Concomitant]
     Active Substance: FLUOROURACIL
     Dosage: 1500MG/MORNING, 2000MG/NIGHT, FROM DAY1 TO DAY14
     Route: 065
     Dates: start: 201701, end: 201703
  4. BEVACIZUMAB. [Suspect]
     Active Substance: BEVACIZUMAB
     Indication: ADENOCARCINOMA OF COLON
     Dosage: DAY1
     Route: 065
     Dates: start: 201506, end: 201510
  5. BEVACIZUMAB. [Suspect]
     Active Substance: BEVACIZUMAB
     Dosage: DAY1
     Route: 065
     Dates: start: 201703, end: 201705
  6. OXALIPLATIN. [Concomitant]
     Active Substance: OXALIPLATIN
     Route: 065
     Dates: start: 20151029, end: 20151210
  7. IRINOTECAN [Concomitant]
     Active Substance: IRINOTECAN
     Indication: ADENOCARCINOMA OF COLON
     Dosage: DAY1
     Route: 041
     Dates: start: 201609, end: 201701
  8. BEVACIZUMAB. [Suspect]
     Active Substance: BEVACIZUMAB
     Dosage: DAY1
     Route: 065
     Dates: start: 201604, end: 201607
  9. 5-FLUOROURACIL [FLUOROURACIL] [Concomitant]
     Active Substance: FLUOROURACIL
     Indication: ADENOCARCINOMA OF COLON
     Dosage: 1500MG/MORNING, 2000MG/NIGHT, FROM DAY1 TO DAY14
     Route: 065
     Dates: start: 201506, end: 201510
  10. BEVACIZUMAB. [Suspect]
     Active Substance: BEVACIZUMAB
     Route: 065
     Dates: start: 20151029, end: 20151210
  11. BEVACIZUMAB. [Suspect]
     Active Substance: BEVACIZUMAB
     Dosage: DAY1
     Route: 065
     Dates: start: 201609, end: 201701
  12. 5-FLUOROURACIL [FLUOROURACIL] [Concomitant]
     Active Substance: FLUOROURACIL
     Route: 065
     Dates: start: 20151029, end: 20151210
  13. 5-FLUOROURACIL [FLUOROURACIL] [Concomitant]
     Active Substance: FLUOROURACIL
     Dosage: 1500MG/MORNING, 2000MG/NIGHT, FROM DAY1 TO DAY14
     Route: 065
     Dates: start: 201604, end: 201607
  14. 5-FLUOROURACIL [FLUOROURACIL] [Concomitant]
     Active Substance: FLUOROURACIL
     Dosage: 1500MG/MORNING, 2000MG/NIGHT, FROM DAY1 TO DAY14
     Route: 065
     Dates: start: 201703, end: 201705
  15. BEVACIZUMAB. [Suspect]
     Active Substance: BEVACIZUMAB
     Dosage: DAY1
     Route: 065
     Dates: start: 201701, end: 201703
  16. 5-FLUOROURACIL [FLUOROURACIL] [Concomitant]
     Active Substance: FLUOROURACIL
     Dosage: 1500MG/MORNING, 1500MG/NIGHT, FROM DAY1 TO DAY10
     Route: 065
     Dates: start: 201609, end: 201701

REACTIONS (4)
  - Gastrointestinal disorder [Unknown]
  - Intestinal obstruction [Unknown]
  - Abdominal discomfort [Unknown]
  - Bone marrow failure [Unknown]

NARRATIVE: CASE EVENT DATE: 201601
